FAERS Safety Report 9122598 (Version 1)
Quarter: 2013Q1

REPORT INFORMATION
  Report Type: Spontaneous
  Country: US (occurrence: None)
  Receive Date: 20130131
  Receipt Date: 20130131
  Transmission Date: 20140127
  Serious: Yes (Hospitalization)
  Sender: FDA-Public Use
  Company Number: 2012-539

PATIENT
  Age: 77 Year
  Sex: Male

DRUGS (10)
  1. PRIALT (ZICONOTIDE) INTRATHECAL INFUSION [Suspect]
     Indication: PAIN
     Route: 037
     Dates: end: 20120928
  2. PRIALT (ZICONOTIDE) INTRATHECAL INFUSION [Suspect]
     Indication: NEUROPATHY PERIPHERAL
     Route: 037
     Dates: end: 20120928
  3. PRIALT (ZICONOTIDE) INTRATHECAL INFUSION [Suspect]
     Indication: NEURALGIA
     Route: 037
     Dates: end: 20120928
  4. PRIALT (ZICONOTIDE) INTRATHECAL INFUSION [Suspect]
     Indication: NEURITIS
     Route: 037
     Dates: end: 20120928
  5. PRIALT (ZICONOTIDE) INTRATHECAL INFUSION [Suspect]
     Indication: RADICULITIS
     Route: 037
     Dates: end: 20120928
  6. DILAUDID (HYDROMORPHONE HYDROCHLORIDE) INJECTION [Suspect]
     Indication: PAIN
     Route: 037
     Dates: end: 20120929
  7. DILAUDID (HYDROMORPHONE HYDROCHLORIDE) INJECTION [Suspect]
     Indication: NEUROPATHY PERIPHERAL
     Route: 037
     Dates: end: 20120929
  8. DILAUDID (HYDROMORPHONE HYDROCHLORIDE) INJECTION [Suspect]
     Indication: NEURALGIA
     Route: 037
     Dates: end: 20120929
  9. DILAUDID (HYDROMORPHONE HYDROCHLORIDE) INJECTION [Suspect]
     Indication: NEURITIS
     Route: 037
     Dates: end: 20120929
  10. DILAUDID (HYDROMORPHONE HYDROCHLORIDE) INJECTION [Suspect]
     Indication: RADICULITIS
     Route: 037
     Dates: end: 20120929

REACTIONS (12)
  - Palpitations [None]
  - Chest pain [None]
  - Dyspnoea [None]
  - Flushing [None]
  - Erythema [None]
  - Feeling hot [None]
  - Drug withdrawal syndrome [None]
  - Hallucination [None]
  - Dysgeusia [None]
  - Memory impairment [None]
  - Dizziness [None]
  - Device failure [None]
